FAERS Safety Report 9406252 (Version 1)
Quarter: 2013Q3

REPORT INFORMATION
  Report Type: Spontaneous
  Country: US (occurrence: US)
  Receive Date: 20130717
  Receipt Date: 20130717
  Transmission Date: 20140515
  Serious: No
  Sender: FDA-Public Use
  Company Number: US-BAUSCH-BL-2013-001686

PATIENT
  Age: 57 Year
  Sex: Female

DRUGS (2)
  1. BESIVANCE (BESIFLOXACIN OPHTHALMIC SUSPENSION) 0.6% [Suspect]
     Indication: CONJUNCTIVITIS
     Dosage: 1 DROP IN EACH EYE; EVERY 2 HOURS ON DAY 1; OPHTHALMIC
     Route: 047
     Dates: start: 20130307, end: 20130307
  2. BESIVANCE (BESIFLOXACIN OPHTHALMIC SUSPENSION) 0.6% [Suspect]
     Dosage: 1 DROP IN EACH EYE; FOUR TIMES DAILY ON DAYS 2-7; OPHTHALMIC
     Route: 047
     Dates: start: 20130308, end: 20130314

REACTIONS (5)
  - Incorrect dose administered [Recovered/Resolved]
  - Ocular hyperaemia [Recovered/Resolved]
  - Eye irritation [Recovered/Resolved]
  - Eyelid margin crusting [Recovered/Resolved]
  - Eye discharge [Recovered/Resolved]
